FAERS Safety Report 24888434 (Version 1)
Quarter: 2025Q1

REPORT INFORMATION
  Report Type: Spontaneous
  Country: US (occurrence: None)
  Receive Date: 20250126
  Receipt Date: 20250126
  Transmission Date: 20250409
  Serious: Yes (unspecified)
  Sender: FDA-CTU
  Company Number: None

PATIENT
  Age: 63 Year
  Sex: Female
  Weight: 69.75 kg

DRUGS (1)
  1. PRIMIDONE [Suspect]
     Active Substance: PRIMIDONE
     Indication: Tremor
     Route: 048
     Dates: start: 20240830, end: 20250115

REACTIONS (4)
  - Hypersensitivity [None]
  - Pruritus [None]
  - Erythema [None]
  - Inflammation [None]

NARRATIVE: CASE EVENT DATE: 20250107
